FAERS Safety Report 20065450 (Version 2)
Quarter: 2021Q4

REPORT INFORMATION
  Report Type: Report from Study
  Country: MX (occurrence: MX)
  Receive Date: 20211113
  Receipt Date: 20211117
  Transmission Date: 20220303
  Serious: Yes (Other)
  Sender: FDA-Public Use
  Company Number: MX-NOVARTISPH-NVSC2021MX256711

PATIENT
  Age: 64 Year
  Sex: Female
  Weight: 70 kg

DRUGS (3)
  1. HYDROCHLOROTHIAZIDE\VALSARTAN [Suspect]
     Active Substance: HYDROCHLOROTHIAZIDE\VALSARTAN
     Indication: Hypertension
     Dosage: 160 MG/ 12.5 MG, 1 DF, QD, STARTED 12 TO 13 YEARS AGO
     Route: 048
     Dates: end: 202109
  2. HYDROCHLOROTHIAZIDE\VALSARTAN [Suspect]
     Active Substance: HYDROCHLOROTHIAZIDE\VALSARTAN
     Dosage: 320 MG/12.5 MG, 1 DF, QD
     Route: 048
     Dates: start: 202110
  3. VALSARTAN [Suspect]
     Active Substance: VALSARTAN
     Indication: Hypertension
     Dosage: 1 DF (80MG) STARTED 2 YEARS AGO
     Route: 048
     Dates: end: 202109

REACTIONS (5)
  - Blood pressure increased [Recovering/Resolving]
  - Hypotension [Unknown]
  - Blood pressure inadequately controlled [Unknown]
  - Blood pressure fluctuation [Unknown]
  - Stress [Unknown]

NARRATIVE: CASE EVENT DATE: 20210822
